FAERS Safety Report 19448260 (Version 2)
Quarter: 2021Q3

REPORT INFORMATION
  Report Type: Spontaneous
  Country: US (occurrence: US)
  Receive Date: 20210622
  Receipt Date: 20210924
  Transmission Date: 20211014
  Serious: Yes (Other)
  Sender: FDA-Public Use
  Company Number: US-DRREDDYS-SPO/USA/21/0136673

PATIENT
  Age: 69 Year
  Sex: Male

DRUGS (8)
  1. FLUOXETINE TABLETS USP, 60 MG [Suspect]
     Active Substance: FLUOXETINE HYDROCHLORIDE
     Indication: BIPOLAR DISORDER
     Dates: end: 201612
  2. LAMOTRIGINE (CHEWABLE, DISPERSIBLE) TABLETS [Concomitant]
     Active Substance: LAMOTRIGINE
     Indication: BIPOLAR DISORDER
     Dosage: AM
     Dates: start: 201803
  3. LAMOTRIGINE (CHEWABLE, DISPERSIBLE) TABLETS [Concomitant]
     Active Substance: LAMOTRIGINE
     Dates: end: 201802
  4. GABAPENTIN. [Concomitant]
     Active Substance: GABAPENTIN
     Dosage: BEDTIME
     Dates: end: 201808
  5. GABAPENTIN. [Concomitant]
     Active Substance: GABAPENTIN
     Indication: BIPOLAR DISORDER
     Dosage: BEDTIME
     Dates: end: 201611
  6. GABAPENTIN. [Concomitant]
     Active Substance: GABAPENTIN
     Dosage: MORNING
     Dates: end: 201808
  7. LAMOTRIGINE (CHEWABLE, DISPERSIBLE) TABLETS [Concomitant]
     Active Substance: LAMOTRIGINE
     Dosage: PM
     Dates: start: 201803
  8. PRAMIPEXOLE. [Concomitant]
     Active Substance: PRAMIPEXOLE
     Indication: BIPOLAR DISORDER
     Dates: end: 201707

REACTIONS (4)
  - Condition aggravated [Recovering/Resolving]
  - Irritability [Recovering/Resolving]
  - Bipolar I disorder [Recovering/Resolving]
  - Mood altered [Recovering/Resolving]

NARRATIVE: CASE EVENT DATE: 2016
